FAERS Safety Report 9449547 (Version 1)
Quarter: 2013Q3

REPORT INFORMATION
  Report Type: Spontaneous
  Country: SA (occurrence: SA)
  Receive Date: 20130809
  Receipt Date: 20130809
  Transmission Date: 20140515
  Serious: Yes (Hospitalization, Other)
  Sender: FDA-Public Use
  Company Number: SA-009507513-1307SAU015519

PATIENT
  Age: 30 Year
  Sex: Female

DRUGS (6)
  1. GONADOTROPIN, CHORIONIC [Suspect]
     Indication: OVULATION INDUCTION
     Dosage: 5000 UNITS, UNK
  2. GONADOTROPIN, CHORIONIC [Suspect]
     Indication: INFERTILE PARTNER
  3. CLOMIPHENE CITRATE [Suspect]
     Indication: OVULATION INDUCTION
     Dosage: 100 MG, FROM THE SECOND DAY OF HER CYCLE FOR 5 DAYS
     Route: 048
  4. CLOMIPHENE CITRATE [Suspect]
     Indication: INFERTILE PARTNER
  5. MENOTROPINS [Suspect]
     Indication: OVULATION INDUCTION
     Dosage: 150 IU, QD, FROM THE THIRD DAY OF HER PERIOD FOR 10 DAYS
  6. MENOTROPINS [Suspect]
     Indication: INFERTILE PARTNER

REACTIONS (4)
  - Abortion spontaneous [Unknown]
  - Ovarian hyperstimulation syndrome [Unknown]
  - Pleural effusion [Unknown]
  - Maternal exposure before pregnancy [Unknown]
